FAERS Safety Report 26141301 (Version 1)
Quarter: 2025Q4

REPORT INFORMATION
  Report Type: Spontaneous
  Country: US (occurrence: US)
  Receive Date: 20251210
  Receipt Date: 20251210
  Transmission Date: 20260117
  Serious: Yes (Hospitalization)
  Sender: VERTEX
  Company Number: US-VERTEX PHARMACEUTICALS-2025-019912

PATIENT
  Age: 8 Year
  Sex: Male
  Weight: 19.8 kg

DRUGS (6)
  1. KALYDECO [Suspect]
     Active Substance: IVACAFTOR
     Indication: Cystic fibrosis
     Dosage: 150 MG, BID
     Dates: start: 20230629
  2. ALBUTEROL [Concomitant]
     Active Substance: ALBUTEROL
     Dosage: 0.083 %, NEBULIZER, SOLUTION
  3. ALBUTEROL SULFATE [Concomitant]
     Active Substance: ALBUTEROL SULFATE
     Dosage: INHALATION
  4. CYPROHEPTADINE [Concomitant]
     Active Substance: CYPROHEPTADINE
     Dosage: 2MG/5ML SYRUP
  5. POLYETHYLENE GLYCOL 3350 [Concomitant]
     Active Substance: POLYETHYLENE GLYCOL 3350
     Dosage: NF, POWDER
  6. PULMOZYME [Concomitant]
     Active Substance: DORNASE ALFA
     Dosage: 1MG/ML, INHALATION SOLUTION

REACTIONS (1)
  - Orthopaedic procedure [Recovered/Resolved]

NARRATIVE: CASE EVENT DATE: 20251121
